FAERS Safety Report 5507410-X (Version None)
Quarter: 2007Q4

REPORT INFORMATION
  Report Type: 
  Country: None (occurrence: None)
  Receive Date: 20071106
  Receipt Date: 20071101
  Transmission Date: 20080405
  Serious: Yes (Hospitalization)
  Sender: FDA-Public Use
  Company Number: SE-WYE-G00561307

PATIENT
  Sex: Female

DRUGS (4)
  1. TAZOCIN [Suspect]
     Indication: CHOLECYSTITIS
     Dosage: UNKNOWN
     Route: 042
     Dates: start: 20061101, end: 20061101
  2. ZINACEF [Suspect]
     Indication: CHOLECYSTITIS
     Dosage: UNK
     Dates: start: 20061101, end: 20061101
  3. CIPROXIN [Suspect]
     Indication: CHOLECYSTITIS
     Dosage: UNK
     Dates: start: 20061101, end: 20061101
  4. METRONIDAZOLE [Suspect]
     Indication: CHOLECYSTITIS
     Dosage: UNK
     Dates: start: 20061101, end: 20061101

REACTIONS (4)
  - HYPERSENSITIVITY [None]
  - OEDEMA MOUTH [None]
  - PRURITUS [None]
  - SNEEZING [None]
